FAERS Safety Report 9800134 (Version 3)
Quarter: 2015Q3

REPORT INFORMATION
  Report Type: Spontaneous
  Country: US (occurrence: US)
  Receive Date: 20140106
  Receipt Date: 20150806
  Transmission Date: 20151125
  Serious: No
  Sender: FDA-Public Use
  Company Number: US-GILEAD-2010-0032437

PATIENT
  Age: 70 Year
  Sex: Female
  Weight: 122.47 kg

DRUGS (13)
  1. ALBUTEROL. [Concomitant]
     Active Substance: ALBUTEROL
  2. FOSAMAX [Concomitant]
     Active Substance: ALENDRONATE SODIUM
  3. BETAMETHASONE DIPROPIONATE/CLOTRIMAZOLE [Concomitant]
  4. TENORMIN [Concomitant]
     Active Substance: ATENOLOL
  5. COUMADIN [Concomitant]
     Active Substance: WARFARIN SODIUM
  6. POT CHLORIDE [Concomitant]
     Active Substance: POTASSIUM CHLORIDE
  7. ULTRAM [Concomitant]
     Active Substance: TRAMADOL HYDROCHLORIDE
  8. LEVOXYL [Concomitant]
     Active Substance: LEVOTHYROXINE SODIUM
  9. TRIAMCINOLONE [Concomitant]
     Active Substance: TRIAMCINOLONE
  10. ADCIRCA [Concomitant]
     Active Substance: TADALAFIL
  11. LASIX [Concomitant]
     Active Substance: FUROSEMIDE
  12. LETAIRIS [Suspect]
     Active Substance: AMBRISENTAN
     Indication: PULMONARY HYPERTENSION
     Route: 048
     Dates: start: 20100922
  13. KLONOPIN [Concomitant]
     Active Substance: CLONAZEPAM

REACTIONS (1)
  - Nasal congestion [Unknown]
